FAERS Safety Report 4590111-2 (Version None)
Quarter: 2005Q1

REPORT INFORMATION
  Report Type: 
  Country: None (occurrence: None)
  Receive Date: 20050217
  Receipt Date: 20050204
  Transmission Date: 20050727
  Serious: Yes (Death, Life-Threatening)
  Sender: FDA-Public Use
  Company Number: 28506

PATIENT
  Age: 79 Year
  Sex: Female

DRUGS (7)
  1. VEXOL [Suspect]
     Dosage: OPHT
     Route: 047
  2. SPIRAMYCINE/METRONIDAZOLE [Concomitant]
  3. TIMOLOL MALEATE [Concomitant]
  4. HYZAAR [Concomitant]
  5. LERCANIDIPINE [Concomitant]
  6. NIMESULIDE [Concomitant]
  7. FORMALDEHIDE/TYROTHRICIN [Concomitant]

REACTIONS (18)
  - ANOREXIA [None]
  - ASTHENIA [None]
  - BLOOD IRON DECREASED [None]
  - COMA [None]
  - DISSEMINATED INTRAVASCULAR COAGULATION [None]
  - HAEMODIALYSIS [None]
  - HYPOCALCAEMIA [None]
  - HYPOTENSION [None]
  - HYPOXIA [None]
  - INFECTION [None]
  - MULTI-ORGAN FAILURE [None]
  - NORMOCHROMIC NORMOCYTIC ANAEMIA [None]
  - PURPURA [None]
  - PYREXIA [None]
  - RASH [None]
  - RENAL FAILURE [None]
  - TACHYCARDIA [None]
  - VOMITING [None]
